FAERS Safety Report 11650701 (Version 1)
Quarter: 2015Q4

REPORT INFORMATION
  Report Type: Spontaneous
  Country: US (occurrence: US)
  Receive Date: 20151021
  Receipt Date: 20151021
  Transmission Date: 20160304
  Serious: Yes (Other)
  Sender: FDA-Public Use
  Company Number: US-MYLANLABS-2015M1035732

PATIENT

DRUGS (1)
  1. SILDENAFIL. [Suspect]
     Active Substance: SILDENAFIL
     Indication: LYMPHATIC DISORDER
     Dosage: 10-20 MG THREE TIMES DAILY
     Route: 065

REACTIONS (2)
  - Haemorrhage [Unknown]
  - Coagulopathy [Unknown]
